FAERS Safety Report 5567137-5 (Version None)
Quarter: 2007Q4

REPORT INFORMATION
  Report Type: 
  Country: None (occurrence: None)
  Receive Date: 20071130
  Receipt Date: 20070814
  Transmission Date: 20080405
  Serious: No
  Sender: FDA-Public Use
  Company Number: US200708002931

PATIENT
  Age: 78 Year
  Sex: Male
  Weight: 113.8 kg

DRUGS (3)
  1. BYETTA [Suspect]
     Indication: TYPE 2 DIABETES MELLITUS
     Dosage: 5 UG, 2/D, SUBCUTANEOUS
     Route: 058
     Dates: start: 20070201, end: 20070301
  2. EXENATIDE 5MCG PEN, DISPOSABLE DEVICE (EXENATIDE PEN (5MCG)) PEN,DISPO [Concomitant]
  3. LANTUS [Concomitant]

REACTIONS (7)
  - ARTHRALGIA [None]
  - INFLUENZA LIKE ILLNESS [None]
  - INJECTION SITE PRURITUS [None]
  - JOINT STIFFNESS [None]
  - LYME DISEASE [None]
  - NAUSEA [None]
  - WEIGHT DECREASED [None]
